FAERS Safety Report 18470405 (Version 2)
Quarter: 2020Q4

REPORT INFORMATION
  Report Type: Other
  Country: CA (occurrence: CA)
  Receive Date: 20201106
  Receipt Date: 20201222
  Transmission Date: 20210114
  Serious: Yes (Hospitalization, Other)
  Sender: FDA-Public Use
  Company Number: CA-CELLTRION INC.-2020CA030355

PATIENT

DRUGS (42)
  1. PIPERACILLIN SODIUM;TAZOBACTAM SODIUM [Suspect]
     Active Substance: PIPERACILLIN SODIUM\TAZOBACTAM SODIUM
     Indication: INFECTION
     Route: 042
  2. ADVAIR HFA [Concomitant]
     Active Substance: FLUTICASONE PROPIONATE\SALMETEROL XINAFOATE
     Dosage: 2 DOSAGE FORMS, 1 EVERY 1 DAYS
     Route: 065
  3. ARAVA [Concomitant]
     Active Substance: LEFLUNOMIDE
     Dosage: 20.0 MG
     Route: 065
  4. ESOMEPRAZOLE. [Concomitant]
     Active Substance: ESOMEPRAZOLE MAGNESIUM
     Dosage: 40.0 MG,  1 EVERY 1 DAYS
     Route: 065
  5. DIPHENHYDRAMINE HYDROCHLORIDE. [Concomitant]
     Active Substance: DIPHENHYDRAMINE HYDROCHLORIDE
     Indication: PREMEDICATION
     Dosage: 50.0 MG
     Route: 048
  6. OXYGEN. [Concomitant]
     Active Substance: OXYGEN
     Route: 065
  7. CIPRALEX [Concomitant]
     Active Substance: ESCITALOPRAM OXALATE
     Dosage: 10.0 MG, 1 EVERY 1 DAYS
     Route: 065
  8. SPIRIVA [Concomitant]
     Active Substance: TIOTROPIUM BROMIDE MONOHYDRATE
     Dosage: UNK,  1 EVERY 1 DAYS
     Route: 065
  9. NITRO [GLYCERYL TRINITRATE] [Concomitant]
     Active Substance: NITROGLYCERIN
     Dosage: 0.4 MG, 1 EVERY 1 DAYS
     Route: 065
  10. SALBUTAMOL [Concomitant]
     Active Substance: ALBUTEROL
  11. XARELTO [Concomitant]
     Active Substance: RIVAROXABAN
     Route: 065
  12. ACETAMINOPHEN. [Concomitant]
     Active Substance: ACETAMINOPHEN
     Indication: PREMEDICATION
     Dosage: 650.0 MG
     Route: 048
  13. LORAZEPAM. [Concomitant]
     Active Substance: LORAZEPAM
     Dosage: 0.5 MG, AS REQUIRED
     Route: 065
  14. ZOPLICONE [Concomitant]
     Active Substance: ZOPICLONE
     Dosage: 7.5 MG,  2 EVERY 1 DAYS
     Route: 065
  15. DIGOXIN. [Concomitant]
     Active Substance: DIGOXIN
  16. FUROSEMIDE. [Concomitant]
     Active Substance: FUROSEMIDE
  17. IMOVANE [Concomitant]
     Active Substance: ZOPICLONE
     Route: 065
  18. MONTELUKAST [Concomitant]
     Active Substance: MONTELUKAST SODIUM
     Indication: SEASONAL ALLERGY
     Route: 065
  19. SPIRIVA [Concomitant]
     Active Substance: TIOTROPIUM BROMIDE MONOHYDRATE
  20. VENTOLINE [SALBUTAMOL] [Concomitant]
     Active Substance: ALBUTEROL SULFATE
  21. RITUXIMAB (UNKNOWN) [Suspect]
     Active Substance: RITUXIMAB
     Indication: RHEUMATOID ARTHRITIS
     Dosage: 1000.0 MG
     Route: 042
  22. AMLODIPINE [Concomitant]
     Active Substance: AMLODIPINE BESYLATE
     Dosage: 5.0 MG,  1 EVERY 1 DAYS
     Route: 065
  23. CODEINE [Concomitant]
     Active Substance: CODEINE
     Dosage: 30.0 MG,  4 EVERY 1 DAYS
     Route: 065
  24. COUMADIN [Concomitant]
     Active Substance: WARFARIN SODIUM
     Dosage: UNK
     Route: 065
  25. LASIX [Concomitant]
     Active Substance: FUROSEMIDE
     Dosage: 20.0 MG, 1 EVERY 1 DAYS
     Route: 065
  26. PREDNISONE. [Concomitant]
     Active Substance: PREDNISONE
     Dosage: 20.0 MG
     Route: 065
  27. RAMIPRIL. [Concomitant]
     Active Substance: RAMIPRIL
     Dosage: 10.0 MG,  1 EVERY 1 DAYS
     Route: 065
  28. TYLENOL [Concomitant]
     Active Substance: ACETAMINOPHEN
     Route: 065
  29. ACETAMINOPHEN;CODEINE PHOSPHATE [Concomitant]
     Active Substance: ACETAMINOPHEN\CODEINE PHOSPHATE
  30. LEFLUNOMIDE. [Concomitant]
     Active Substance: LEFLUNOMIDE
     Route: 065
  31. CLONAZEPAM. [Suspect]
     Active Substance: CLONAZEPAM
     Indication: PRODUCT USED FOR UNKNOWN INDICATION
     Dosage: 0.5 MG
     Route: 065
  32. METHYLPREDNISOLONE. [Concomitant]
     Active Substance: METHYLPREDNISOLONE
     Indication: PREMEDICATION
     Dosage: 100.0 MG
     Route: 042
  33. NITROGLYCERIN. [Concomitant]
     Active Substance: NITROGLYCERIN
     Dosage: 0.4 MG,  1 EVERY 1 DAYS
     Route: 065
  34. CIPRALEX [Concomitant]
     Active Substance: ESCITALOPRAM OXALATE
     Dosage: 10.0 MG, 1 EVERY 1 DAYS
     Route: 065
  35. ESOMEPRAZOLE. [Concomitant]
     Active Substance: ESOMEPRAZOLE MAGNESIUM
     Dosage: 40.0 MG, 1 EVERY 1 DAYS
     Route: 065
  36. CODEINE [Concomitant]
     Active Substance: CODEINE
     Dosage: 30.0 MG
     Route: 065
  37. DIPHENHYDRAMINE HYDROCHLORIDE. [Concomitant]
     Active Substance: DIPHENHYDRAMINE HYDROCHLORIDE
     Indication: PREMEDICATION
     Dosage: 50.0 MG
     Route: 048
  38. WARFARIN [Concomitant]
     Active Substance: WARFARIN
     Route: 065
  39. RITUXIMAB (UNKNOWN) [Suspect]
     Active Substance: RITUXIMAB
     Dosage: 1000.0 MG
     Route: 042
  40. ADVAIR HFA [Concomitant]
     Active Substance: FLUTICASONE PROPIONATE\SALMETEROL XINAFOATE
     Dosage: UNK, 2 EVERY 1 DAYS
     Route: 065
  41. VENTOLIN [Concomitant]
     Active Substance: ALBUTEROL SULFATE
     Dosage: UNK,  1 EVERY 1 DAYS
     Route: 065
  42. ZOPICLONE [Concomitant]
     Active Substance: ZOPICLONE
     Dosage: 7.5 MG
     Route: 065

REACTIONS (45)
  - Arthropathy [Not Recovered/Not Resolved]
  - Fall [Not Recovered/Not Resolved]
  - Musculoskeletal disorder [Not Recovered/Not Resolved]
  - Heart rate increased [Not Recovered/Not Resolved]
  - Hypotension [Not Recovered/Not Resolved]
  - Abdominal discomfort [Not Recovered/Not Resolved]
  - Grip strength decreased [Not Recovered/Not Resolved]
  - International normalised ratio increased [Not Recovered/Not Resolved]
  - Joint swelling [Not Recovered/Not Resolved]
  - Weight decreased [Not Recovered/Not Resolved]
  - Weight increased [Not Recovered/Not Resolved]
  - Diarrhoea [Not Recovered/Not Resolved]
  - Limb deformity [Not Recovered/Not Resolved]
  - Musculoskeletal stiffness [Not Recovered/Not Resolved]
  - Neck pain [Not Recovered/Not Resolved]
  - Peripheral swelling [Not Recovered/Not Resolved]
  - Rheumatoid arthritis [Not Recovered/Not Resolved]
  - Cellulitis [Not Recovered/Not Resolved]
  - Balance disorder [Not Recovered/Not Resolved]
  - Benign neoplasm of thyroid gland [Not Recovered/Not Resolved]
  - Blood pressure systolic increased [Not Recovered/Not Resolved]
  - Renal cancer [Not Recovered/Not Resolved]
  - Retching [Not Recovered/Not Resolved]
  - Nausea [Not Recovered/Not Resolved]
  - Vomiting [Not Recovered/Not Resolved]
  - Asthenia [Not Recovered/Not Resolved]
  - Benign breast neoplasm [Not Recovered/Not Resolved]
  - Hepatitis [Not Recovered/Not Resolved]
  - Blood pressure increased [Not Recovered/Not Resolved]
  - Dyspnoea [Not Recovered/Not Resolved]
  - Fatigue [Not Recovered/Not Resolved]
  - Blood pressure systolic abnormal [Not Recovered/Not Resolved]
  - Malaise [Not Recovered/Not Resolved]
  - Oxygen saturation abnormal [Not Recovered/Not Resolved]
  - Blood immunoglobulin G decreased [Not Recovered/Not Resolved]
  - Localised infection [Not Recovered/Not Resolved]
  - Blood pressure diastolic abnormal [Not Recovered/Not Resolved]
  - C-reactive protein increased [Not Recovered/Not Resolved]
  - Influenza like illness [Not Recovered/Not Resolved]
  - Musculoskeletal discomfort [Not Recovered/Not Resolved]
  - Respiratory rate increased [Not Recovered/Not Resolved]
  - Arthralgia [Not Recovered/Not Resolved]
  - Influenza [Not Recovered/Not Resolved]
  - Infusion related reaction [Not Recovered/Not Resolved]
  - Pain [Not Recovered/Not Resolved]
